FAERS Safety Report 12285381 (Version 1)
Quarter: 2016Q2

REPORT INFORMATION
  Report Type: Spontaneous
  Country: US (occurrence: None)
  Receive Date: 20160419
  Receipt Date: 20160419
  Transmission Date: 20160815
  Serious: No
  Sender: FDA-Public Use
  Company Number: None

PATIENT
  Age: 4 Year
  Sex: Female

DRUGS (1)
  1. KIDS SUNSCREEN LOTION UP + UP [Suspect]
     Active Substance: HOMOSALATE\OCTINOXATE\OCTISALATE\TITANIUM DIOXIDE
     Indication: PROPHYLAXIS AGAINST SOLAR RADIATION
     Route: 061
     Dates: start: 20160405, end: 20160408

REACTIONS (2)
  - Reaction to drug excipients [None]
  - Photosensitivity reaction [None]

NARRATIVE: CASE EVENT DATE: 20160406
